FAERS Safety Report 9342802 (Version 1)
Quarter: 2013Q2

REPORT INFORMATION
  Report Type: Spontaneous
  Country: US (occurrence: None)
  Receive Date: 20130607
  Receipt Date: 20130607
  Transmission Date: 20140414
  Serious: Yes (Other)
  Sender: FDA-Public Use
  Company Number: 1741657

PATIENT
  Age: 71 Year
  Sex: Female

DRUGS (2)
  1. DOBUTAMINE [Suspect]
     Indication: CEREBRAL VASOCONSTRICTION
     Route: 041
  2. NORADRENALINE [Suspect]
     Indication: CEREBRAL VASOCONSTRICTION
     Route: 041

REACTIONS (3)
  - Ejection fraction decreased [None]
  - Cardiomyopathy [None]
  - Stress cardiomyopathy [None]
